FAERS Safety Report 22604224 (Version 4)
Quarter: 2024Q1

REPORT INFORMATION
  Report Type: Spontaneous
  Country: JP (occurrence: JP)
  Receive Date: 20230615
  Receipt Date: 20240328
  Transmission Date: 20240410
  Serious: Yes (Other)
  Sender: FDA-Public Use
  Company Number: JP-MSD-M2023-17415

PATIENT
  Age: 7 Decade
  Sex: Female

DRUGS (5)
  1. KEYTRUDA [Suspect]
     Active Substance: PEMBROLIZUMAB
     Indication: Triple negative breast cancer
     Dosage: 200 MILLIGRAM, Q3W
     Route: 041
     Dates: start: 20230410
  2. CARBOPLATIN [Concomitant]
     Active Substance: CARBOPLATIN
     Indication: Triple negative breast cancer
     Dosage: (AUC1.5), QW
     Route: 041
     Dates: start: 20230410, end: 20230410
  3. CARBOPLATIN [Concomitant]
     Active Substance: CARBOPLATIN
     Dosage: AUC 1.1, QW
     Route: 041
     Dates: start: 2023
  4. PACLITAXEL [Concomitant]
     Active Substance: PACLITAXEL
     Indication: Triple negative breast cancer
     Dosage: UNK
     Route: 041
     Dates: start: 20230410, end: 202304
  5. PACLITAXEL [Concomitant]
     Active Substance: PACLITAXEL
     Dosage: UNK
     Route: 041
     Dates: start: 2023

REACTIONS (4)
  - Neutropenia [Unknown]
  - Oropharyngeal pain [Unknown]
  - Pyrexia [Unknown]
  - Platelet count decreased [Unknown]

NARRATIVE: CASE EVENT DATE: 20230101
